FAERS Safety Report 10242626 (Version 2)
Quarter: 2014Q3

REPORT INFORMATION
  Report Type: Report from Study
  Country: US (occurrence: US)
  Receive Date: 20140617
  Receipt Date: 20140825
  Transmission Date: 20150326
  Serious: Yes (Death, Other)
  Sender: FDA-Public Use
  Company Number: US-TAKEDA-2014MPI001651

PATIENT

DRUGS (2)
  1. DECADRON [Suspect]
     Active Substance: DEXAMETHASONE
     Indication: PLASMA CELL MYELOMA
     Dosage: 40 MG, ON DAYS 1, 8 AND 15 EVERY 21 DAYS
     Route: 048
     Dates: start: 20110104, end: 20110114
  2. VELCADE [Suspect]
     Active Substance: BORTEZOMIB
     Indication: PLASMA CELL MYELOMA
     Dosage: DOSE: 1.3, ON DAYS 1,4,8 AND 11 EVERY 21 DAYS
     Route: 042
     Dates: start: 20110104, end: 20110114

REACTIONS (2)
  - Emphysema [Fatal]
  - Plasma cell myeloma [Fatal]
